FAERS Safety Report 7794204-8 (Version None)
Quarter: 2011Q4

REPORT INFORMATION
  Report Type: 
  Country: None (occurrence: None)
  Receive Date: 20111004
  Receipt Date: 20110921
  Transmission Date: 20120403
  Serious: Yes (Hospitalization, Other)
  Sender: FDA-Public Use
  Company Number: US-BAYER-201040346NA

PATIENT
  Age: 41 Year
  Sex: Female
  Weight: 108.84 kg

DRUGS (5)
  1. YAZ [Suspect]
     Indication: PREMENSTRUAL SYNDROME
     Route: 048
     Dates: start: 20100101, end: 20100701
  2. OMEPRAZOLE [Concomitant]
  3. NAPROXEN (ALEVE) [Concomitant]
     Dosage: UNK
     Route: 048
     Dates: end: 20100712
  4. TYLENOL-500 [Concomitant]
  5. ZITHROMAX [Concomitant]
     Indication: OROPHARYNGEAL PAIN
     Dosage: UNK
     Dates: start: 20100501

REACTIONS (3)
  - PNEUMOTHORAX [None]
  - PULMONARY EMBOLISM [None]
  - PAIN [None]
